FAERS Safety Report 7807313-1 (Version None)
Quarter: 2011Q4

REPORT INFORMATION
  Report Type: 
  Country: None (occurrence: None)
  Receive Date: 20111011
  Receipt Date: 20111003
  Transmission Date: 20120403
  Serious: Yes (Other)
  Sender: FDA-Public Use
  Company Number: FR-GLAXOSMITHKLINE-B0749650A

PATIENT
  Sex: Female
  Weight: 62 kg

DRUGS (1)
  1. ALLI [Suspect]
     Indication: WEIGHT DECREASED
     Dosage: 60MG UNKNOWN
     Route: 065
     Dates: start: 20110601, end: 20110707

REACTIONS (11)
  - LIVER FUNCTION TEST ABNORMAL [None]
  - HEPATITIS [None]
  - DECREASED APPETITE [None]
  - OFF LABEL USE [None]
  - FATIGUE [None]
  - NAUSEA [None]
  - CYTOLYTIC HEPATITIS [None]
  - ASTHENIA [None]
  - MYALGIA [None]
  - HEPATIC ENZYME INCREASED [None]
  - JAUNDICE [None]
